FAERS Safety Report 9618366 (Version 2)
Quarter: 2013Q4

REPORT INFORMATION
  Report Type: Spontaneous
  Country: US (occurrence: US)
  Receive Date: 20131014
  Receipt Date: 20131205
  Transmission Date: 20140711
  Serious: Yes (Death)
  Sender: FDA-Public Use
  Company Number: US-BRISTOL-MYERS SQUIBB COMPANY-19531524

PATIENT
  Age: 68 Year
  Sex: Female
  Weight: 96.14 kg

DRUGS (7)
  1. BYETTA PEN DISPOSABLE [Suspect]
     Indication: TYPE 2 DIABETES MELLITUS
     Dates: start: 20100922
  2. PROTONIX [Concomitant]
  3. LEVEMIR [Concomitant]
     Route: 058
  4. NORVASC [Concomitant]
  5. DIOVAN [Concomitant]
  6. EFFEXOR [Concomitant]
  7. CATAPRES [Concomitant]

REACTIONS (1)
  - Pancreatic carcinoma metastatic [Fatal]
